FAERS Safety Report 7153042-X (Version None)
Quarter: 2010Q4

REPORT INFORMATION
  Report Type: 
  Country: None (occurrence: None)
  Receive Date: 20101213
  Receipt Date: 20101203
  Transmission Date: 20110411
  Serious: Yes (Other)
  Sender: FDA-Public Use
  Company Number: US-NOVOPROD-319558

PATIENT
  Sex: Male
  Weight: 95.238 kg

DRUGS (8)
  1. VICTOZA [Suspect]
     Indication: TYPE 2 DIABETES MELLITUS
     Dosage: 1.2 MG, QD
     Dates: start: 20100907, end: 20101123
  2. VICTOZA [Suspect]
     Dosage: 0.6 MG, QD; FOR 1 WEEK
     Dates: start: 20100701, end: 20100101
  3. VICTOZA [Suspect]
     Dosage: 1.2 MG, QD; FOR 1 WEEK
     Dates: start: 20100101, end: 20100101
  4. VICTOZA [Suspect]
     Dosage: 1.8 MG, QD
     Dates: start: 20100101, end: 20100906
  5. GABAPENTIN [Concomitant]
     Indication: PRODUCT USED FOR UNKNOWN INDICATION
     Dosage: UNK
  6. COZAAR [Concomitant]
     Indication: PRODUCT USED FOR UNKNOWN INDICATION
     Dosage: UNK
  7. ASPIRIN [Concomitant]
     Indication: PRODUCT USED FOR UNKNOWN INDICATION
     Dosage: UNK
  8. FLOMAX [Concomitant]
     Indication: PRODUCT USED FOR UNKNOWN INDICATION
     Dosage: UNK

REACTIONS (4)
  - CHOLELITHIASIS [None]
  - NAUSEA [None]
  - PANCREATITIS ACUTE [None]
  - WEIGHT DECREASED [None]
